APPROVED DRUG PRODUCT: CLINDAMYCIN PHOSPHATE
Active Ingredient: CLINDAMYCIN PHOSPHATE
Strength: EQ 1% BASE
Dosage Form/Route: SOLUTION;TOPICAL
Application: A064159 | Product #001 | TE Code: AT
Applicant: FOUGERA PHARMACEUTICALS INC
Approved: Jun 5, 1997 | RLD: No | RS: No | Type: RX